FAERS Safety Report 13663960 (Version 1)
Quarter: 2017Q2

REPORT INFORMATION
  Report Type: Spontaneous
  Country: US (occurrence: US)
  Receive Date: 20170619
  Receipt Date: 20170619
  Transmission Date: 20170830
  Serious: No
  Sender: FDA-Public Use
  Company Number: US-LPDUSPRD-20170207

PATIENT

DRUGS (1)
  1. CYANOCOBALAMIN INJECTION, USP (0031-25) [Suspect]
     Active Substance: CYANOCOBALAMIN
     Dosage: 1 ML
     Route: 065
     Dates: start: 20160527, end: 20160527

REACTIONS (2)
  - Drug administration error [Unknown]
  - No adverse event [Unknown]
